FAERS Safety Report 5227549-6 (Version None)
Quarter: 2007Q1

REPORT INFORMATION
  Report Type: 
  Country: None (occurrence: None)
  Receive Date: 20070202
  Receipt Date: 20070123
  Transmission Date: 20070707
  Serious: Yes (Other)
  Sender: FDA-Public Use
  Company Number: GB-ELI_LILLY_AND_COMPANY-GB200701004363

PATIENT
  Age: 22 Year
  Sex: Female

DRUGS (3)
  1. ZYPREXA [Suspect]
     Indication: SEDATION
     Dosage: 10 MG, UNK
     Route: 030
     Dates: start: 20060929, end: 20061001
  2. DIAZEPAM [Concomitant]
     Indication: SEDATION
     Dosage: 10 MG, 4/D
     Route: 048
     Dates: start: 20060929
  3. LORAZEPAM [Concomitant]
     Dosage: 2 MG, UNK
     Route: 048
     Dates: start: 20060929

REACTIONS (2)
  - RESPIRATORY DEPRESSION [None]
  - SOMNOLENCE [None]
